FAERS Safety Report 10094650 (Version 1)
Quarter: 2014Q2

REPORT INFORMATION
  Report Type: Spontaneous
  Country: US (occurrence: None)
  Receive Date: 20140411
  Receipt Date: 20140411
  Transmission Date: 20141212
  Serious: No
  Sender: FDA-Public Use
  Company Number: 2014US002943

PATIENT
  Age: 67 Year
  Sex: Female
  Weight: 59 kg

DRUGS (6)
  1. ICLUSIG (PONATINIB) TABLET, 15MG [Suspect]
     Indication: ACUTE LYMPHOCYTIC LEUKAEMIA
     Route: 048
     Dates: start: 201305, end: 201307
  2. LISINOPRIL (LISINOPRIL) [Concomitant]
  3. CARVEDILOL (CARVEDILOL) [Concomitant]
  4. ALLOPURINOL (ALLOPURINOL) [Concomitant]
  5. GABAPENTIN (GABAPENTIN) [Concomitant]
  6. AMLODIPINE (AMLODIPINE) [Concomitant]

REACTIONS (1)
  - Urinary tract infection [None]
